FAERS Safety Report 23722145 (Version 1)
Quarter: 2024Q2

REPORT INFORMATION
  Report Type: Spontaneous
  Country: US (occurrence: None)
  Receive Date: 20240408
  Receipt Date: 20240408
  Transmission Date: 20240716
  Serious: Yes (Death)
  Sender: FDA-Public Use
  Company Number: None

PATIENT
  Age: 73 Year
  Sex: Male

DRUGS (13)
  1. INGREZZA [Suspect]
     Active Substance: VALBENAZINE
     Indication: Movement disorder
     Dosage: 80 MG DAILY ORAL
     Route: 048
     Dates: start: 20221022, end: 20240405
  2. ANASTROZOLE [Concomitant]
  3. CARBAMAZEPINE [Concomitant]
  4. FLUCONAZOLE [Concomitant]
     Active Substance: FLUCONAZOLE
  5. LAMOTRIGINE [Concomitant]
  6. OXANDROLONE [Concomitant]
  7. QUETIAPINE [Concomitant]
  8. SELZENTRY [Concomitant]
     Active Substance: MARAVIROC
  9. ELIQUIS [Concomitant]
     Active Substance: APIXABAN
  10. TRIUMEQ [Concomitant]
     Active Substance: ABACAVIR SULFATE\DOLUTEGRAVIR SODIUM\LAMIVUDINE
  11. TAMSULOSIN [Concomitant]
     Active Substance: TAMSULOSIN
  12. BENZTROPINE [Concomitant]
     Active Substance: BENZTROPINE
  13. FLUCONAZOLE [Concomitant]
     Active Substance: FLUCONAZOLE

REACTIONS (1)
  - Death [None]

NARRATIVE: CASE EVENT DATE: 20240405
